FAERS Safety Report 7148537-9 (Version None)
Quarter: 2010Q4

REPORT INFORMATION
  Report Type: 
  Country: None (occurrence: None)
  Receive Date: 20101209
  Receipt Date: 20101130
  Transmission Date: 20110411
  Serious: Yes (Hospitalization)
  Sender: FDA-Public Use
  Company Number: PL-BRISTOL-MYERS SQUIBB COMPANY-15424443

PATIENT
  Age: 37 Year
  Sex: Female

DRUGS (3)
  1. ARIPIPRAZOLE [Suspect]
     Indication: SCHIZOPHRENIA
     Dosage: 30NOV10-ONG 20MG
     Route: 048
     Dates: start: 20101124
  2. OLANZAPINE [Concomitant]
     Dates: start: 20101114
  3. RELANIUM [Concomitant]
     Dates: start: 20101129

REACTIONS (1)
  - PSYCHOTIC DISORDER [None]
